FAERS Safety Report 21665156 (Version 1)
Quarter: 2022Q4

REPORT INFORMATION
  Report Type: Spontaneous
  Country: US (occurrence: US)
  Receive Date: 20221130
  Receipt Date: 20221130
  Transmission Date: 20230113
  Serious: Yes (Other)
  Sender: FDA-Public Use
  Company Number: US-STRIDES ARCOLAB LIMITED-2022SP005648

PATIENT
  Age: 78 Year
  Sex: Female

DRUGS (12)
  1. GABAPENTIN [Suspect]
     Active Substance: GABAPENTIN
     Indication: Herpes zoster
     Dosage: 300 MILLIGRAM, TID
     Route: 065
     Dates: start: 202009
  2. GABAPENTIN [Suspect]
     Active Substance: GABAPENTIN
     Dosage: INCREASED TO 600 MILLIGRAM, TID BEFORE BED TIME
     Route: 065
  3. GABAPENTIN [Suspect]
     Active Substance: GABAPENTIN
     Dosage: INCREASED TO 800 MILLIGRAM, TID BEFORE BED TIME
     Route: 065
  4. GABAPENTIN [Suspect]
     Active Substance: GABAPENTIN
     Dosage: GRADUALLY TAPERED
     Route: 065
  5. AMITRIPTYLINE [Suspect]
     Active Substance: AMITRIPTYLINE
     Indication: Herpes zoster
     Dosage: 25 MILLIGRAM BEFORE BED TIME
     Route: 065
  6. AMITRIPTYLINE [Suspect]
     Active Substance: AMITRIPTYLINE
     Dosage: GRADUALLY TAPERED
     Route: 065
  7. OXYCODONE AND ACETAMINOPHEN [Suspect]
     Active Substance: ACETAMINOPHEN\OXYCODONE HYDROCHLORIDE
     Indication: Herpes zoster
     Dosage: 5/325 MG
     Route: 065
  8. OXYCODONE AND ACETAMINOPHEN [Suspect]
     Active Substance: ACETAMINOPHEN\OXYCODONE HYDROCHLORIDE
     Dosage: REDUCED TO BID
     Route: 065
  9. TIZANIDINE [Concomitant]
     Active Substance: TIZANIDINE
     Indication: Muscle relaxant therapy
     Dosage: 4 MILLIGRAM, TID
     Route: 065
  10. BACLOFEN [Concomitant]
     Active Substance: BACLOFEN
     Indication: Product used for unknown indication
     Dosage: 10 MILLIGRAM, BID
     Route: 065
  11. TRAMADOL [Concomitant]
     Active Substance: TRAMADOL
     Indication: Product used for unknown indication
     Dosage: 50 MILLIGRAM, TID
     Route: 065
  12. MELOXICAM [Concomitant]
     Active Substance: MELOXICAM
     Indication: Inflammation
     Dosage: 15 MILLIGRAM PER DAY
     Route: 065

REACTIONS (2)
  - Drug ineffective [Unknown]
  - Off label use [Unknown]
